FAERS Safety Report 26184369 (Version 1)
Quarter: 2025Q4

REPORT INFORMATION
  Report Type: Spontaneous
  Country: US (occurrence: US)
  Receive Date: 20251222
  Receipt Date: 20251222
  Transmission Date: 20260117
  Serious: No
  Sender: BIOCON
  Company Number: US-MIMS-BCONMC-19076

PATIENT

DRUGS (3)
  1. YESINTEK [Suspect]
     Active Substance: USTEKINUMAB-KFCE
     Indication: Colitis ulcerative
     Dosage: 90 MG/ML, ONCE EVERY 8 WEEKS
     Route: 065
  2. TYLENOL [Concomitant]
     Active Substance: ACETAMINOPHEN
     Indication: Product used for unknown indication
     Dosage: UNK, UNK
     Route: 065
  3. OXYCODONE [Concomitant]
     Active Substance: OXYCODONE
     Indication: Product used for unknown indication
     Dosage: 5 MILLIGRAM, AS NEEDED
     Route: 065

REACTIONS (4)
  - Constipation [Unknown]
  - Myalgia [Unknown]
  - Abdominal pain [Unknown]
  - Headache [Unknown]
